FAERS Safety Report 24186749 (Version 1)
Quarter: 2024Q3

REPORT INFORMATION
  Report Type: Report from Study
  Country: US (occurrence: None)
  Receive Date: 20240808
  Receipt Date: 20240808
  Transmission Date: 20241017
  Serious: Yes (Other)
  Sender: ASTRAZENECA
  Company Number: 2021A274732

PATIENT
  Weight: 47.2 kg

DRUGS (2)
  1. TAGRISSO [Suspect]
     Active Substance: OSIMERTINIB
     Indication: Gene mutation
     Route: 048
  2. TAGRISSO [Suspect]
     Active Substance: OSIMERTINIB
     Indication: Gene mutation
     Route: 048

REACTIONS (24)
  - Metastases to lymph nodes [Unknown]
  - Varicose vein [Unknown]
  - Malignant neoplasm progression [Unknown]
  - Stress cardiomyopathy [Unknown]
  - Dehydration [Unknown]
  - Skin fissures [Recovering/Resolving]
  - Eye disorder [Unknown]
  - Visual impairment [Unknown]
  - Skin discolouration [Unknown]
  - Angiopathy [Unknown]
  - Spider vein [Unknown]
  - Hair disorder [Unknown]
  - Hypoaesthesia [Unknown]
  - Memory impairment [Unknown]
  - Gait disturbance [Unknown]
  - Impaired healing [Unknown]
  - Hyperkeratosis [Unknown]
  - Mental disorder [Recovering/Resolving]
  - Depressed mood [Recovering/Resolving]
  - Emotional distress [Recovering/Resolving]
  - Pain [Unknown]
  - Pain [Unknown]
  - Dyspnoea [Unknown]
  - Product dose omission issue [Unknown]
